FAERS Safety Report 8377987-8 (Version None)
Quarter: 2012Q2

REPORT INFORMATION
  Report Type: 
  Country: None (occurrence: None)
  Receive Date: 20120522
  Receipt Date: 20120509
  Transmission Date: 20120825
  Serious: Yes (Other)
  Sender: FDA-Public Use
  Company Number: GB-MYLANLABS-2012S1009491

PATIENT
  Age: 85 Year
  Sex: Female
  Weight: 23.04 kg

DRUGS (3)
  1. TAMOXIFEN CITRATE [Suspect]
     Indication: BREAST CANCER
     Route: 048
     Dates: start: 20100101
  2. AMOXICILLIN AND CLAVULANATE POTASSIUM [Suspect]
     Indication: CONJUNCTIVITIS
     Dosage: 1-3 TIMES A DAY
     Route: 048
     Dates: start: 20111017, end: 20111021
  3. BENDROFLUMETHIAZIDE [Concomitant]
     Indication: BLOOD PRESSURE INCREASED
     Route: 048

REACTIONS (4)
  - CONJUNCTIVITIS [None]
  - DIZZINESS [None]
  - BLOOD PRESSURE INCREASED [None]
  - FATIGUE [None]
